FAERS Safety Report 16952493 (Version 1)
Quarter: 2019Q4

REPORT INFORMATION
  Report Type: Spontaneous
  Country: US (occurrence: US)
  Receive Date: 20190904
  Receipt Date: 20190904
  Transmission Date: 20200122
  Serious: Yes (Hospitalization)
  Sender: FDA-Public Use
  Company Number: None

PATIENT
  Age: 56 Year
  Sex: Female
  Weight: 113 kg

DRUGS (3)
  1. OLANZAPINE. [Suspect]
     Active Substance: OLANZAPINE
     Dates: end: 20190806
  2. ALOXI [Suspect]
     Active Substance: PALONOSETRON HYDROCHLORIDE
     Dates: end: 20190820
  3. DEXAMETHASONE. [Suspect]
     Active Substance: DEXAMETHASONE
     Dates: end: 20190822

REACTIONS (8)
  - Sedation [None]
  - Neutropenia [None]
  - Nausea [None]
  - Cellulitis [None]
  - Fatigue [None]
  - Pain [None]
  - White blood cell count decreased [None]
  - Clostridium difficile infection [None]

NARRATIVE: CASE EVENT DATE: 20190827
